FAERS Safety Report 23908860 (Version 1)
Quarter: 2024Q2

REPORT INFORMATION
  Report Type: Report from Study
  Country: DE (occurrence: DE)
  Receive Date: 20240528
  Receipt Date: 20240528
  Transmission Date: 20240716
  Serious: Yes (Hospitalization)
  Sender: FDA-Public Use
  Company Number: DE-ABBVIE-5774402

PATIENT
  Sex: Male

DRUGS (2)
  1. CARBIDOPA\LEVODOPA [Suspect]
     Active Substance: CARBIDOPA\LEVODOPA
     Indication: Parkinson^s disease
     Dosage: MD:10.0 ML, CRD: 3.6 ML/H, ED: 1.5ML
     Route: 050
     Dates: start: 20210707
  2. CARBIDOPA\LEVODOPA [Suspect]
     Active Substance: CARBIDOPA\LEVODOPA

REACTIONS (7)
  - Gait inability [Recovering/Resolving]
  - Dysphagia [Recovering/Resolving]
  - Therapeutic product effect decreased [Recovering/Resolving]
  - On and off phenomenon [Recovering/Resolving]
  - Asthenia [Not Recovered/Not Resolved]
  - Dysstasia [Recovering/Resolving]
  - Device dislocation [Unknown]

NARRATIVE: CASE EVENT DATE: 20240101
